FAERS Safety Report 7679613-X (Version None)
Quarter: 2011Q3

REPORT INFORMATION
  Report Type: 
  Country: None (occurrence: None)
  Receive Date: 20110812
  Receipt Date: 20110810
  Transmission Date: 20111222
  Serious: Yes (Life-Threatening, Hospitalization)
  Sender: FDA-Public Use
  Company Number: JP-B.I. PHARMACEUTICALS,INC./RIDGEFIELD-2011-BP-17041NB

PATIENT
  Sex: Female
  Weight: 42.7 kg

DRUGS (6)
  1. PRADAXA [Suspect]
     Indication: THROMBOSIS PROPHYLAXIS
     Dosage: 300 MG
     Route: 048
     Dates: start: 20110614, end: 20110617
  2. ALDACTONE [Concomitant]
     Indication: POLYURIA
     Dosage: 25 MG
     Route: 048
     Dates: start: 20110617, end: 20110618
  3. LASIX [Concomitant]
     Indication: POLYURIA
     Dosage: 20 MG
     Route: 042
     Dates: start: 20110612, end: 20110616
  4. ALDACTONE [Concomitant]
     Dosage: 40 MG
     Route: 048
     Dates: start: 20110617, end: 20110618
  5. IRBESARTAN [Concomitant]
     Indication: HYPERTENSION
     Dosage: 100 MG
     Route: 048
     Dates: start: 20110614, end: 20110618
  6. LASIX [Concomitant]
     Dosage: 40 MG
     Route: 048
     Dates: start: 20110617, end: 20110618

REACTIONS (3)
  - RENAL FAILURE ACUTE [None]
  - INTERNATIONAL NORMALISED RATIO INCREASED [None]
  - SHOCK HAEMORRHAGIC [None]
